FAERS Safety Report 19605587 (Version 1)
Quarter: 2021Q3

REPORT INFORMATION
  Report Type: Report from Study
  Country: US (occurrence: US)
  Receive Date: 20210723
  Receipt Date: 20210723
  Transmission Date: 20211014
  Serious: Yes (Hospitalization, Other)
  Sender: FDA-Public Use
  Company Number: US-009507513-2103USA001336

PATIENT
  Age: 49 Year
  Sex: Female

DRUGS (12)
  1. PEMBROLIZUMAB. [Suspect]
     Active Substance: PEMBROLIZUMAB
     Indication: ENDOMETRIAL CANCER STAGE IV
     Dosage: 25 MG INJECTION INTO VEIN EVERY 21 DAYS
     Route: 042
     Dates: start: 202012, end: 20210423
  2. LENVATINIB MESYLATE [Suspect]
     Active Substance: LENVATINIB MESYLATE
     Indication: ENDOMETRIAL CANCER RECURRENT
     Dosage: 20 MG BY MOUTH ONCE A DAY
     Route: 048
     Dates: start: 202009
  3. METFORMIN [Concomitant]
     Active Substance: METFORMIN HYDROCHLORIDE
     Dosage: 2 PILLS TWICE A DAY
     Route: 048
     Dates: start: 202102
  4. PROCHLORPERAZINE. [Concomitant]
     Active Substance: PROCHLORPERAZINE
     Dosage: UNK
  5. PEMBROLIZUMAB. [Suspect]
     Active Substance: PEMBROLIZUMAB
     Dosage: UNK
     Dates: start: 2021, end: 20210714
  6. METFORMIN [Concomitant]
     Active Substance: METFORMIN HYDROCHLORIDE
     Indication: BLOOD GLUCOSE ABNORMAL
     Dosage: UNK
     Route: 048
  7. LOSARTAN. [Concomitant]
     Active Substance: LOSARTAN
     Dosage: UNK
  8. ONDANSETRON [Concomitant]
     Active Substance: ONDANSETRON
     Indication: VOMITING
     Dosage: UNK
  9. PEMBROLIZUMAB. [Suspect]
     Active Substance: PEMBROLIZUMAB
     Indication: ENDOMETRIAL CANCER RECURRENT
     Dosage: 25 MG INJECTION INTO VEIN EVERY 21 DAYS
     Route: 042
     Dates: start: 202009, end: 202012
  10. LENVATINIB MESYLATE [Suspect]
     Active Substance: LENVATINIB MESYLATE
     Indication: ENDOMETRIAL CANCER STAGE IV
  11. DOCUSATE;SENNA [Concomitant]
     Active Substance: DOCUSATE\SENNOSIDES
     Dosage: UNK
     Route: 048
  12. CALCIUM CARBONATE. [Concomitant]
     Active Substance: CALCIUM CARBONATE
     Dosage: UNK
     Route: 048

REACTIONS (36)
  - Adverse drug reaction [Unknown]
  - Thyroid mass [Unknown]
  - Fatigue [Not Recovered/Not Resolved]
  - Incorrect dose administered [Unknown]
  - Recurrent cancer [Unknown]
  - Abnormal faeces [Unknown]
  - Irritability [Not Recovered/Not Resolved]
  - Vocal cord disorder [Unknown]
  - Dysphagia [Unknown]
  - Myalgia [Unknown]
  - Vomiting [Unknown]
  - Product dose omission issue [Unknown]
  - Illness [Unknown]
  - Feeding disorder [Unknown]
  - Weight decreased [Not Recovered/Not Resolved]
  - Nausea [Unknown]
  - Illness [Unknown]
  - Goitre [Unknown]
  - Ill-defined disorder [Unknown]
  - Weight decreased [Unknown]
  - Inappropriate schedule of product administration [Unknown]
  - Dysphonia [Unknown]
  - Immune system disorder [Unknown]
  - Humidity intolerance [Unknown]
  - Pain [Unknown]
  - Thyroid cancer [Unknown]
  - Neuropathy peripheral [Unknown]
  - Restlessness [Unknown]
  - Lung neoplasm malignant [Unknown]
  - Diabetes mellitus inadequate control [Unknown]
  - Lymphadenopathy [Unknown]
  - Musculoskeletal disorder [Unknown]
  - Fibrosis [Unknown]
  - Sleep disorder [Unknown]
  - Dyspepsia [Unknown]
  - Asthenia [Unknown]

NARRATIVE: CASE EVENT DATE: 202009
